FAERS Safety Report 23417467 (Version 1)
Quarter: 2024Q1

REPORT INFORMATION
  Report Type: Spontaneous
  Country: TN (occurrence: TN)
  Receive Date: 20240118
  Receipt Date: 20240118
  Transmission Date: 20240409
  Serious: Yes (Hospitalization, Other)
  Sender: FDA-Public Use
  Company Number: TN-SA-2024SA015921

PATIENT
  Age: 36 Year
  Sex: Female

DRUGS (4)
  1. ARAVA [Suspect]
     Active Substance: LEFLUNOMIDE
     Indication: Rheumatoid arthritis
     Dosage: 100 MG, QD
     Dates: start: 20051223
  2. ARAVA [Suspect]
     Active Substance: LEFLUNOMIDE
     Dosage: 20 MG, QD
     Dates: start: 200512, end: 20060112
  3. PREDNISONE [Suspect]
     Active Substance: PREDNISONE
     Indication: Rheumatoid arthritis
     Dosage: 40 MG, QD
     Dates: start: 2006
  4. PREDNISONE [Suspect]
     Active Substance: PREDNISONE
     Dosage: 10 MG, QD
     Dates: start: 2005, end: 20060119

REACTIONS (21)
  - Toxic epidermal necrolysis [Recovering/Resolving]
  - Rash maculo-papular [Recovering/Resolving]
  - Face oedema [Recovering/Resolving]
  - Pustule [Recovering/Resolving]
  - Oral mucosa erosion [Recovering/Resolving]
  - Cheilitis [Recovering/Resolving]
  - Angular cheilitis [Recovering/Resolving]
  - Conjunctivitis [Recovering/Resolving]
  - Pyrexia [Recovering/Resolving]
  - Skin plaque [Recovering/Resolving]
  - Erythema [Recovering/Resolving]
  - Skin exfoliation [Recovering/Resolving]
  - Skin lesion [Recovering/Resolving]
  - Scab [Recovering/Resolving]
  - Skin reaction [Recovering/Resolving]
  - Pancytopenia [Recovering/Resolving]
  - Epidermal necrosis [Recovering/Resolving]
  - Hepatic cytolysis [Recovered/Resolved]
  - Generalised tonic-clonic seizure [Unknown]
  - Blindness [Unknown]
  - Keratitis [Recovering/Resolving]

NARRATIVE: CASE EVENT DATE: 20060112
